FAERS Safety Report 4359916-7 (Version None)
Quarter: 2004Q2

REPORT INFORMATION
  Report Type: 
  Country: None (occurrence: None)
  Receive Date: 20040518
  Receipt Date: 20040426
  Transmission Date: 20050107
  Serious: Yes (Other)
  Sender: FDA-Public Use
  Company Number: PHFR2004GB01886

PATIENT
  Age: 42 Year
  Sex: Female

DRUGS (2)
  1. BACLOFEN [Suspect]
     Indication: MULTIPLE SCLEROSIS
     Route: 048
  2. DANTROLENE [Suspect]
     Indication: MULTIPLE SCLEROSIS
     Route: 048

REACTIONS (4)
  - ATRIOVENTRICULAR BLOCK [None]
  - CARDIAC ARREST [None]
  - CONVULSION [None]
  - ELECTROCARDIOGRAM PR PROLONGATION [None]
